FAERS Safety Report 6574629-9 (Version None)
Quarter: 2010Q1

REPORT INFORMATION
  Report Type: 
  Country: None (occurrence: None)
  Receive Date: 20100202
  Receipt Date: 20100120
  Transmission Date: 20100710
  Serious: Yes (Hospitalization, Other)
  Sender: FDA-Public Use
  Company Number: DSU-2010-00207

PATIENT
  Age: 76 Year
  Sex: Female
  Weight: 76.6579 kg

DRUGS (3)
  1. BENICAR HCT [Suspect]
     Indication: HYPERTENSION
     Dosage: 40/25MG (QD), PER ORAL
     Route: 048
  2. CIPRO [Concomitant]
  3. NEXIUM [Concomitant]

REACTIONS (6)
  - BLOOD PRESSURE INCREASED [None]
  - COELIAC DISEASE [None]
  - DIARRHOEA [None]
  - GASTROINTESTINAL INFECTION [None]
  - VOMITING [None]
  - WEIGHT DECREASED [None]
